FAERS Safety Report 10521774 (Version 1)
Quarter: 2014Q4

REPORT INFORMATION
  Report Type: Spontaneous
  Country: US (occurrence: None)
  Receive Date: 20141014
  Receipt Date: 20141014
  Transmission Date: 20150528
  Serious: No
  Sender: FDA-Public Use
  Company Number: None

PATIENT

DRUGS (2)
  1. SYNTHROID [Suspect]
     Active Substance: LEVOTHYROXINE SODIUM
     Dosage: 25 MCG.
  2. SYNTHROID [Suspect]
     Active Substance: LEVOTHYROXINE SODIUM

REACTIONS (2)
  - Drug dispensing error [None]
  - Accidental overdose [None]
